FAERS Safety Report 15868858 (Version 1)
Quarter: 2019Q1

REPORT INFORMATION
  Report Type: Spontaneous
  Country: US (occurrence: US)
  Receive Date: 20190125
  Receipt Date: 20190125
  Transmission Date: 20190417
  Serious: No
  Sender: FDA-Public Use
  Company Number: US-GLAXOSMITHKLINE-US2019008376

PATIENT
  Age: 58 Year
  Sex: Female

DRUGS (2)
  1. FLONASE [Suspect]
     Active Substance: FLUTICASONE PROPIONATE
     Indication: NASAL CONGESTION
     Dosage: 1 UNK, QD
     Route: 045
  2. BREATHE RIGHT NASAL STRIPS EXTRA CLEAR NASAL STICK (DEVICE) [Suspect]
     Active Substance: DEVICE
     Indication: NASAL CONGESTION
     Dosage: UNK
     Route: 062
     Dates: start: 20190115, end: 20190116

REACTIONS (3)
  - Application site erythema [Unknown]
  - Underdose [Unknown]
  - Dyspnoea [Unknown]
